FAERS Safety Report 5049945-2 (Version None)
Quarter: 2006Q2

REPORT INFORMATION
  Report Type: 
  Country: None (occurrence: None)
  Receive Date: 20060614
  Receipt Date: 20060321
  Transmission Date: 20061013
  Serious: Yes (Other)
  Sender: FDA-Public Use
  Company Number: 441525

PATIENT
  Sex: Female

DRUGS (16)
  1. BONIVA [Suspect]
     Indication: OSTEOPOROSIS
     Dosage: 150 MG 1 PER MONTH ORAL
     Route: 048
     Dates: start: 20060318
  2. CALCIUM/VITAMIN D (CALCIUM/VITAMIN NOS) [Concomitant]
  3. INSULIN [Concomitant]
  4. GLUCOPHAGE [Concomitant]
  5. PROCARDIA [Concomitant]
  6. UNIRETIC (HYDROCHLOROTHIAZIDE/MOEXIPRIL) [Concomitant]
  7. POTASSIUM (POTASSIUM NOS) [Concomitant]
  8. LEVOXYL [Concomitant]
  9. PLAVIX [Concomitant]
  10. ASPIRIN [Concomitant]
  11. AMITRIPTYLINE (AMITRIPTYLINE) [Concomitant]
  12. ADVAIR DISKUS 100/50 [Concomitant]
  13. ALBUTEROL [Concomitant]
  14. LORAZEPAM [Concomitant]
  15. VITAMIN B12 INJECTION (CYANOCOBALAMIN) [Concomitant]
  16. MOBIC [Concomitant]

REACTIONS (6)
  - ARTHRALGIA [None]
  - CHILLS [None]
  - OEDEMA PERIPHERAL [None]
  - PAIN [None]
  - PAIN IN EXTREMITY [None]
  - PYREXIA [None]
